FAERS Safety Report 23123991 (Version 2)
Quarter: 2023Q4

REPORT INFORMATION
  Report Type: Spontaneous
  Country: IT (occurrence: IT)
  Receive Date: 20231030
  Receipt Date: 20231106
  Transmission Date: 20240109
  Serious: Yes (Hospitalization)
  Sender: FDA-Public Use
  Company Number: IT-BoehringerIngelheim-2023-BI-269181

PATIENT
  Age: 68 Year
  Sex: Female

DRUGS (1)
  1. DABIGATRAN [Suspect]
     Active Substance: DABIGATRAN
     Indication: Atrial fibrillation
     Route: 048

REACTIONS (11)
  - Anticoagulation drug level increased [Recovered/Resolved]
  - Fall [Unknown]
  - Anaemia [Unknown]
  - Prothrombin time prolonged [Recovered/Resolved]
  - Activated partial thromboplastin time prolonged [Recovered/Resolved]
  - General physical health deterioration [Unknown]
  - Injury [Unknown]
  - Anaemia macrocytic [Unknown]
  - Hepatic function abnormal [Unknown]
  - Melaena [Unknown]
  - Coagulation time prolonged [Unknown]
